FAERS Safety Report 6549850-6 (Version None)
Quarter: 2010Q1

REPORT INFORMATION
  Report Type: 
  Country: None (occurrence: None)
  Receive Date: 20100119
  Receipt Date: 20100104
  Transmission Date: 20100710
  Serious: Yes (Life-Threatening, Other)
  Sender: FDA-Public Use
  Company Number: AUR-APL-2010-00028

PATIENT
  Age: 92 Year
  Sex: Female

DRUGS (3)
  1. BISOPROLOL FUMARATE [Suspect]
     Indication: HEART RATE
     Dosage: 5MG, DAILY, ORAL
     Route: 048
     Dates: end: 20091124
  2. DILTIAZEM [Suspect]
     Indication: HEART RATE
     Dosage: 200MG, DAILY, ORAL
     Route: 048
     Dates: start: 20091124, end: 20091205
  3. PROPRANOLOL [Suspect]
     Indication: ANXIETY
     Dosage: 10MG - BID - ORAL
     Route: 048
     Dates: start: 20091202, end: 20091205

REACTIONS (5)
  - ATRIAL FIBRILLATION [None]
  - ATRIOVENTRICULAR BLOCK COMPLETE [None]
  - CIRCULATORY COLLAPSE [None]
  - DEPRESSED LEVEL OF CONSCIOUSNESS [None]
  - HYPOTENSION [None]
